FAERS Safety Report 8477131-2 (Version None)
Quarter: 2012Q2

REPORT INFORMATION
  Report Type: 
  Country: None (occurrence: None)
  Receive Date: 20120629
  Receipt Date: 20120625
  Transmission Date: 20120825
  Serious: No
  Sender: FDA-Public Use
  Company Number: US-PFIZER INC-2012119903

PATIENT
  Sex: Male

DRUGS (2)
  1. INLYTA [Suspect]
     Indication: RENAL CANCER
     Dosage: 5 MG, 1X/DAY (5 MG QD)
     Route: 048
     Dates: start: 20120314
  2. INLYTA [Suspect]
     Indication: RENAL CELL CARCINOMA
     Dosage: 5 MG, 3X/DAY
     Route: 048
     Dates: start: 20120425

REACTIONS (3)
  - CHEST PAIN [None]
  - FATIGUE [None]
  - GLOSSODYNIA [None]
